FAERS Safety Report 10088949 (Version 2)
Quarter: 2014Q2

REPORT INFORMATION
  Report Type: Spontaneous
  Country: IT (occurrence: IT)
  Receive Date: 20140421
  Receipt Date: 20140512
  Transmission Date: 20141212
  Serious: Yes (Hospitalization)
  Sender: FDA-Public Use
  Company Number: IT-JNJFOC-20140412936

PATIENT
  Age: 42 Year
  Sex: Female

DRUGS (1)
  1. PALEXIA [Suspect]
     Indication: BACK PAIN
     Route: 048
     Dates: start: 20121027, end: 20121027

REACTIONS (5)
  - Gamma-glutamyltransferase increased [Recovering/Resolving]
  - Disorientation [Recovering/Resolving]
  - Confusional state [Recovering/Resolving]
  - Transaminases increased [Recovering/Resolving]
  - Sopor [Recovering/Resolving]
